FAERS Safety Report 7820191-X (Version None)
Quarter: 2011Q4

REPORT INFORMATION
  Report Type: 
  Country: None (occurrence: None)
  Receive Date: 20111018
  Receipt Date: 20111013
  Transmission Date: 20120403
  Serious: Yes (Hospitalization)
  Sender: FDA-Public Use
  Company Number: CH-PFIZER INC-2011215077

PATIENT
  Age: 78 Year
  Sex: Male

DRUGS (6)
  1. MARCUMAR [Concomitant]
     Dosage: UNK
  2. PLAQUENIL [Suspect]
     Indication: AORTITIS
     Dosage: 100 MG, 3X/DAY
     Route: 048
     Dates: start: 20110530, end: 20110708
  3. CRESTOR [Concomitant]
     Dosage: UNK
  4. VIBRAMYCIN [Suspect]
     Indication: AORTITIS
     Dosage: 100 MG, 3X/DAY
     Route: 048
     Dates: start: 20110530, end: 20110708
  5. CONCOR [Concomitant]
     Dosage: UNK
  6. PANTOPRAZOLE SODIUM [Concomitant]
     Dosage: UNK

REACTIONS (1)
  - CHOLESTATIC LIVER INJURY [None]
